FAERS Safety Report 12328413 (Version 3)
Quarter: 2016Q3

REPORT INFORMATION
  Report Type: Spontaneous
  Country: US (occurrence: US)
  Receive Date: 20160503
  Receipt Date: 20160808
  Transmission Date: 20161109
  Serious: No
  Sender: FDA-Public Use
  Company Number: US-BEH-2014043190

PATIENT
  Age: 1 Year
  Sex: Male
  Weight: 9 kg

DRUGS (10)
  1. RAPAMUNE [Concomitant]
     Active Substance: SIROLIMUS
     Dosage: 1 MG/ML
  2. HIZENTRA [Suspect]
     Active Substance: HUMAN IMMUNOGLOBULIN G
     Indication: HYPOGAMMAGLOBULINAEMIA
     Route: 058
  3. ALGAL [Concomitant]
     Dosage: 900 DHA 300 MG
  4. CEFTRIAXONE. [Concomitant]
     Active Substance: CEFTRIAXONE
  5. EPIPEN [Concomitant]
     Active Substance: EPINEPHRINE
  6. MEPRON [Concomitant]
     Active Substance: ATOVAQUONE
     Dosage: 750 MG/5 ML
  7. CEPHALEXIN. [Concomitant]
     Active Substance: CEPHALEXIN
  8. HIZENTRA [Suspect]
     Active Substance: HUMAN IMMUNOGLOBULIN G
     Indication: HUMORAL IMMUNE DEFECT
     Route: 058
     Dates: start: 20150117, end: 20150213
  9. SIROLIMUS. [Concomitant]
     Active Substance: SIROLIMUS
  10. PROVENTIL HFA [Concomitant]
     Active Substance: ALBUTEROL SULFATE

REACTIONS (7)
  - Vomiting [Unknown]
  - Infection [Unknown]
  - Pyrexia [Unknown]
  - Sinusitis [Unknown]
  - Nasopharyngitis [Unknown]
  - Pyrexia [Unknown]
  - Rhinorrhoea [Unknown]

NARRATIVE: CASE EVENT DATE: 20150201
